FAERS Safety Report 19667344 (Version 2)
Quarter: 2021Q3

REPORT INFORMATION
  Report Type: Report from Study
  Country: US (occurrence: US)
  Receive Date: 20210806
  Receipt Date: 20210830
  Transmission Date: 20211014
  Serious: Yes (Hospitalization)
  Sender: FDA-Public Use
  Company Number: US-JNJFOC-20210762106

PATIENT
  Age: 24 Year
  Sex: Female

DRUGS (5)
  1. SPRAVATO [Suspect]
     Active Substance: ESKETAMINE
     Dosage: 84 MG, TOTAL 30 DOSES
     Dates: start: 20210323, end: 20210713
  2. SPRAVATO [Suspect]
     Active Substance: ESKETAMINE
     Indication: DEPRESSION
     Dosage: 56 MG, TOTAL 1 DOSE
     Dates: start: 20191105, end: 20191105
  3. SPRAVATO [Suspect]
     Active Substance: ESKETAMINE
     Dates: start: 20210727, end: 20210727
  4. SPRAVATO [Suspect]
     Active Substance: ESKETAMINE
     Dosage: 84 MG, TOTAL 98 DOSES
     Dates: start: 20191107, end: 20210218
  5. SPRAVATO [Suspect]
     Active Substance: ESKETAMINE
     Dosage: 112 MG, TOTAL 8 DOSES
     Dates: start: 20210223, end: 20210318

REACTIONS (4)
  - Suicidal ideation [Recovered/Resolved]
  - Product dose omission issue [Recovered/Resolved]
  - Sedation [Recovered/Resolved]
  - Dissociation [Recovered/Resolved]

NARRATIVE: CASE EVENT DATE: 20210718
